FAERS Safety Report 4600278-5 (Version None)
Quarter: 2005Q1

REPORT INFORMATION
  Report Type: 
  Country: None (occurrence: None)
  Receive Date: 20050307
  Receipt Date: 20050303
  Transmission Date: 20050727
  Serious: Yes (Life-Threatening)
  Sender: FDA-Public Use
  Company Number: DE-GLAXOSMITHKLINE-D0046047A

PATIENT
  Age: 49 Year
  Sex: Female

DRUGS (3)
  1. LAMICTAL [Suspect]
     Indication: BIPOLAR DISORDER
     Dosage: 25MG PER DAY
     Route: 065
     Dates: start: 20010111, end: 20010126
  2. JATROSOM [Suspect]
     Dosage: 80MG PER DAY
     Route: 065
     Dates: start: 20001001, end: 20010126
  3. SOLIAN [Suspect]
     Dosage: 300MG PER DAY
     Route: 065
     Dates: start: 20001004, end: 20010126

REACTIONS (12)
  - BRAIN STEM SYNDROME [None]
  - DELIRIUM [None]
  - DIZZINESS [None]
  - DRUG INTERACTION [None]
  - HEPATIC ENZYME INCREASED [None]
  - HYPERREFLEXIA [None]
  - HYPERTHERMIA [None]
  - NYSTAGMUS [None]
  - PUPILLARY REFLEX IMPAIRED [None]
  - RESPIRATORY ARREST [None]
  - SEROTONIN SYNDROME [None]
  - TREMOR [None]
